FAERS Safety Report 7263491-7 (Version None)
Quarter: 2011Q1

REPORT INFORMATION
  Report Type: 
  Country: None (occurrence: None)
  Receive Date: 20110130
  Receipt Date: 20101214
  Transmission Date: 20110831
  Serious: No
  Sender: FDA-Public Use
  Company Number: US-ABBOTT-10P-163-0691719-00

PATIENT
  Age: 46 Year
  Sex: Male

DRUGS (9)
  1. METOPROLOL ESR [Concomitant]
     Indication: HYPERTENSION
  2. COLACE [Concomitant]
     Indication: CONSTIPATION PROPHYLAXIS
     Dosage: AT BEDTIME
  3. CYMBALTA [Concomitant]
     Indication: AFFECTIVE DISORDER
  4. HUMIRA [Suspect]
     Indication: PSORIATIC ARTHROPATHY
     Dates: start: 20101101
  5. LORTAB [Concomitant]
     Indication: PAIN
  6. DIOVAN [Concomitant]
     Indication: HYPERTENSION
  7. METHOTREXATE [Concomitant]
     Indication: PSORIATIC ARTHROPATHY
  8. FOLIC ACID [Concomitant]
     Indication: IMMUNE ENHANCEMENT THERAPY
  9. REQUIP [Concomitant]
     Indication: RESTLESS LEGS SYNDROME
     Dosage: TWO 0.5MG TABLETS AT BEDTIME

REACTIONS (3)
  - INJECTION SITE PAIN [None]
  - HEADACHE [None]
  - DIARRHOEA [None]
